FAERS Safety Report 5018408-2 (Version None)
Quarter: 2006Q2

REPORT INFORMATION
  Report Type: 
  Country: None (occurrence: None)
  Receive Date: 20060530
  Receipt Date: 20060516
  Transmission Date: 20061013
  Serious: Yes (Other)
  Sender: FDA-Public Use
  Company Number: 2006065346

PATIENT
  Age: 29 Year
  Sex: Female
  Weight: 43.0917 kg

DRUGS (1)
  1. BEXTRA [Suspect]
     Indication: PAIN
     Dosage: 40 MG (20 MG, 2 IN 1 D), ORAL
     Route: 048
     Dates: start: 20050217

REACTIONS (1)
  - STEVENS-JOHNSON SYNDROME [None]
